FAERS Safety Report 5828451-9 (Version None)
Quarter: 2008Q3

REPORT INFORMATION
  Report Type: 
  Country: None (occurrence: None)
  Receive Date: 20080731
  Receipt Date: 20080722
  Transmission Date: 20090109
  Serious: Yes (Hospitalization)
  Sender: FDA-Public Use
  Company Number: GB-WATSON-2008-04441

PATIENT
  Age: 47 Year
  Sex: Male

DRUGS (3)
  1. NANDROLONE DECANOATE (WATSON LABORATORIES) [Suspect]
     Indication: DRUG ABUSE
     Dosage: 300 MG, 1/WEEK
     Route: 065
     Dates: start: 20050101, end: 20070101
  2. TESTOSTERONE ENANTHATE (WATSON LABORATORIES) [Suspect]
     Indication: DRUG ABUSE
     Dosage: 200 MG, 1/WEEK
     Route: 065
     Dates: start: 20050101, end: 20070101
  3. TESTOSTERONE PROPIONATE (WATSON LABORATORIES) [Suspect]
     Indication: DRUG ABUSE
     Dosage: 300 MG, 1/WEEK
     Route: 065
     Dates: start: 20050101, end: 20070101

REACTIONS (1)
  - LARYNGITIS [None]
